FAERS Safety Report 8591389-0 (Version None)
Quarter: 2012Q3

REPORT INFORMATION
  Report Type: 
  Country: None (occurrence: None)
  Receive Date: 20120814
  Receipt Date: 20120803
  Transmission Date: 20120928
  Serious: Yes (Other)
  Sender: FDA-Public Use
  Company Number: BR-ACCORD-014380

PATIENT
  Age: 67 Year
  Sex: Female
  Weight: 59 kg

DRUGS (10)
  1. OMEPRAZOLE [Concomitant]
     Route: 048
     Dates: start: 20120508, end: 20120708
  2. LEVOTHYROXINE SODIUM [Concomitant]
     Route: 048
  3. CALCIUM CARBONATE [Concomitant]
     Route: 048
  4. ONDANSETRON [Concomitant]
     Indication: PREMEDICATION
     Route: 042
     Dates: start: 20120703, end: 20120703
  5. HYDROCHLOROTHIAZIDE [Concomitant]
     Route: 048
  6. GEMCITABINE HYDROCHLORIDE [Suspect]
     Route: 042
     Dates: start: 20120703, end: 20120703
  7. BROMAZEPAM [Concomitant]
     Route: 048
  8. DEXAMETHASONE [Concomitant]
     Indication: PREMEDICATION
     Route: 042
     Dates: start: 20120703, end: 20120703
  9. AMITRIPTYLINE HCL [Concomitant]
     Dates: start: 20120508, end: 20120708
  10. BROMOPRIDE [Concomitant]
     Route: 048
     Dates: start: 20120508, end: 20120708

REACTIONS (3)
  - ERYTHEMA [None]
  - OFF LABEL USE [None]
  - DISCOMFORT [None]
